FAERS Safety Report 15766301 (Version 1)
Quarter: 2018Q4

REPORT INFORMATION
  Report Type: Spontaneous
  Country: US (occurrence: US)
  Receive Date: 20181227
  Receipt Date: 20181227
  Transmission Date: 20190205
  Serious: No
  Sender: FDA-Public Use
  Company Number: US-PFIZER INC-2018531337

PATIENT
  Age: 66 Year
  Sex: Male

DRUGS (20)
  1. AMIODARONE HCL [Suspect]
     Active Substance: AMIODARONE HYDROCHLORIDE
     Indication: ATRIAL FIBRILLATION
     Dosage: UNK
  2. VITAMIN C [Concomitant]
     Active Substance: ASCORBIC ACID
     Dosage: 1 DF, DAILY (TAKE 1 TABLET BY MOUTH DAILY)
     Route: 048
  3. DHEA [Concomitant]
     Active Substance: PRASTERONE
     Dosage: 25 MG, DAILY (1 TABLET BY MOUTH DAILY)
     Route: 048
  4. LIPITOR [Concomitant]
     Active Substance: ATORVASTATIN CALCIUM
     Dosage: 10 MG, DAILY (TAKE 10 MG BY MOUTH DAILY)
     Route: 048
  5. XARELTO [Concomitant]
     Active Substance: RIVAROXABAN
     Dosage: 20 MG, DAILY
     Route: 048
  6. COENZYME Q10 [Concomitant]
     Active Substance: UBIDECARENONE
     Dosage: 600 MG, DAILY (TAKE 600 MG BY MOUTH DAILY)
     Route: 048
  7. ARIMIDEX [Concomitant]
     Active Substance: ANASTROZOLE
     Dosage: 0.5 MG, UNK (TAKE 0.5 MG BY MOUTH EVERY 14 DAYS)
     Route: 048
  8. FLOMAX [Concomitant]
     Active Substance: TAMSULOSIN HYDROCHLORIDE
     Dosage: 0.4 MG, DAILY (TAKE 0.4 MG BY MOUTH DAILY)
     Route: 048
  9. EGCG [Concomitant]
     Active Substance: EPIGALLOCATECHIN GALLATE
     Dosage: 500 MG, DAILY (500 MG A DAY)
  10. LOVENOX [Concomitant]
     Active Substance: ENOXAPARIN SODIUM
     Dosage: 100 MG, 2X/DAY (100 MG SUBCUTANEOUSLY EVERY 12 HOURS)
     Route: 058
  11. ADOXA [DOXYCYCLINE] [Concomitant]
     Dosage: 100 MG, 2X/DAY
     Route: 048
  12. DOLOBID [Concomitant]
     Active Substance: DIFLUNISAL
     Dosage: 500 MG, 2X/DAY (TAKE 1 TABLET BY MOUTH 2 TIMES DAILY)
     Route: 048
  13. BYSTOLIC [Concomitant]
     Active Substance: NEBIVOLOL HYDROCHLORIDE
     Dosage: 5 MG, DAILY (TAKE 5 MG BY MOUTH DAILY)
     Route: 048
  14. PROSCAR [Concomitant]
     Active Substance: FINASTERIDE
     Dosage: 5 MG, DAILY (TAKE 5 MG BY MOUTH DAILY)
     Route: 048
  15. GREEN TEA EXTRACT [Concomitant]
     Dosage: 725 MG, 2X/DAY (725MG TWICE A DAY)
     Route: 048
  16. TESTIM [Concomitant]
     Active Substance: TESTOSTERONE
     Dosage: 10 G, DAILY (APPLY TOPICALLY AS DIRECTED)
     Route: 061
  17. URSODEOXYCHOLIC ACID [Concomitant]
     Active Substance: URSODIOL
     Dosage: 250 MG, 2X/DAY
  18. VITAMIN D [ERGOCALCIFEROL] [Concomitant]
     Dosage: 5000 IU, DAILY (5000 UNITS EVERY DAY)
     Route: 048
  19. CIALIS [Concomitant]
     Active Substance: TADALAFIL
     Dosage: 5 MG, DAILY (TAKE 5 MG BY MOUTH DAILY)
     Route: 048
  20. LEXAPRO [Concomitant]
     Active Substance: ESCITALOPRAM OXALATE
     Dosage: 5 MG, DAILY (5 MG ORAL TABLET TAKE 5 MG BY MOUTH DAILY)
     Route: 048

REACTIONS (3)
  - Drug hypersensitivity [Unknown]
  - Gastrointestinal disorder [Unknown]
  - Product use in unapproved indication [Unknown]
